FAERS Safety Report 6042161-7 (Version None)
Quarter: 2009Q1

REPORT INFORMATION
  Report Type: 
  Country: None (occurrence: None)
  Receive Date: 20090116
  Receipt Date: 20090107
  Transmission Date: 20090719
  Serious: Yes (Other)
  Sender: FDA-Public Use
  Company Number: PHEH2009US00648

PATIENT
  Sex: Female

DRUGS (8)
  1. ZOMETA [Suspect]
     Indication: MULTIPLE MYELOMA
     Dosage: 4 MG MONTHLY
     Route: 042
     Dates: start: 20020901, end: 20060901
  2. PYRIDOSTIGMINE BROMIDE [Concomitant]
  3. DILTIAZEM [Concomitant]
  4. LISINOPRIL [Concomitant]
  5. METOPROLOL [Concomitant]
  6. LASIX [Concomitant]
  7. THEOPHYLLINE [Concomitant]
  8. PREDNISONE [Concomitant]

REACTIONS (3)
  - BONE DISORDER [None]
  - PURULENT DISCHARGE [None]
  - TOOTH EXTRACTION [None]
